FAERS Safety Report 19908430 (Version 2)
Quarter: 2022Q1

REPORT INFORMATION
  Report Type: Report from Study
  Country: US (occurrence: US)
  Receive Date: 20211002
  Receipt Date: 20220115
  Transmission Date: 20220423
  Serious: Yes (Hospitalization)
  Sender: FDA-Public Use
  Company Number: US-REGENERON PHARMACEUTICALS, INC.-2021-89177

PATIENT
  Age: 73 Year
  Sex: Female

DRUGS (1)
  1. CASIRIVIMAB\IMDEVIMAB [Suspect]
     Active Substance: CASIRIVIMAB\IMDEVIMAB
     Indication: COVID-19 treatment
     Dosage: UNK UNK, SINGLE
     Route: 042
     Dates: start: 20210913, end: 20210913

REACTIONS (11)
  - Anaemia [Unknown]
  - Asthenia [Unknown]
  - Hypotension [Unknown]
  - Melaena [Recovered/Resolved]
  - Cough [Unknown]
  - Pallor [Unknown]
  - Dizziness [Unknown]
  - Chest pain [Unknown]
  - Oesophageal varices haemorrhage [Unknown]
  - Portal hypertensive gastropathy [Unknown]
  - Product prescribing issue [Unknown]

NARRATIVE: CASE EVENT DATE: 20210913
